FAERS Safety Report 10724507 (Version 1)
Quarter: 2015Q1

REPORT INFORMATION
  Report Type: Spontaneous
  Country: US (occurrence: None)
  Receive Date: 20150115
  Receipt Date: 20150115
  Transmission Date: 20150721
  Serious: Yes (Other)
  Sender: FDA-Public Use
  Company Number: 2015-0025-SPO

PATIENT
  Age: 57 Year
  Sex: Female
  Weight: 92.08 kg

DRUGS (10)
  1. TESTOSTERONE. [Suspect]
     Active Substance: TESTOSTERONE
     Indication: BLOOD TESTOSTERONE DECREASED
     Dates: start: 20140827, end: 20141114
  2. COREG [Concomitant]
     Active Substance: CARVEDILOL
  3. OXAZEPAM. [Concomitant]
     Active Substance: OXAZEPAM
  4. TESTOSTERONE. [Suspect]
     Active Substance: TESTOSTERONE
     Indication: HOT FLUSH
     Dates: start: 20140827, end: 20141114
  5. HUMIRA [Suspect]
     Active Substance: ADALIMUMAB
     Indication: RHEUMATOID ARTHRITIS
     Dosage: 40 MG, 1 IN 2 WEEK
     Route: 058
     Dates: start: 201303, end: 20141031
  6. CYMBALTA (DOLOXETINE HYDROCHLORIDE) [Concomitant]
  7. HYZAAR (HYDROCHLOROTHIAZIDE, LOSARTAN POTASSIUM) [Concomitant]
  8. ESTROGEL [Suspect]
     Active Substance: ESTRADIOL
     Indication: BLOOD OESTROGEN DECREASED
     Dates: start: 20140827, end: 20141114
  9. AMPICILLIN [Concomitant]
     Active Substance: AMPICILLIN
  10. ESTROGEL [Suspect]
     Active Substance: ESTRADIOL
     Indication: HOT FLUSH
     Dates: start: 20140827, end: 20141114

REACTIONS (12)
  - Pain in extremity [None]
  - Skin discolouration [None]
  - Muscle spasms [None]
  - Peripheral swelling [None]
  - Pulmonary embolism [None]
  - Foot deformity [None]
  - Blood testosterone increased [None]
  - Blood oestrogen decreased [None]
  - Thrombosis [None]
  - Exostosis [None]
  - Drug ineffective [None]
  - Dyspnoea [None]

NARRATIVE: CASE EVENT DATE: 20141117
